FAERS Safety Report 18123785 (Version 1)
Quarter: 2020Q3

REPORT INFORMATION
  Report Type: Spontaneous
  Country: US (occurrence: US)
  Receive Date: 20200806
  Receipt Date: 20200806
  Transmission Date: 20201103
  Serious: Yes (Hospitalization)
  Sender: FDA-Public Use
  Company Number: None

PATIENT
  Age: 85 Year
  Sex: Male
  Weight: 79.38 kg

DRUGS (3)
  1. SULFAMETHOXAZOLE/TRIMETHOPRIM (SULFAMETHOXAZOLE 400MG/TRIMETHOPRIM 80 [Suspect]
     Active Substance: SULFAMETHOXAZOLE\TRIMETHOPRIM
     Route: 048
     Dates: start: 20200404, end: 20200422
  2. WARFARIN (WARFARIN NA (EXELAN) 5MG TAB) [Suspect]
     Active Substance: WARFARIN SODIUM
     Indication: MITRAL VALVE INCOMPETENCE
     Route: 048
     Dates: start: 20190703, end: 20200422
  3. WARFARIN (WARFARIN NA (EXELAN) 5MG TAB) [Suspect]
     Active Substance: WARFARIN SODIUM
     Indication: ATRIAL FIBRILLATION
     Route: 048
     Dates: start: 20190703, end: 20200422

REACTIONS (8)
  - Gastric haemorrhage [None]
  - Haemoglobin decreased [None]
  - Colorectal cancer [None]
  - International normalised ratio increased [None]
  - Haemorrhage [None]
  - International normalised ratio fluctuation [None]
  - Haematocrit decreased [None]
  - Anaemia [None]

NARRATIVE: CASE EVENT DATE: 20200422
